FAERS Safety Report 4969110-4 (Version None)
Quarter: 2006Q2

REPORT INFORMATION
  Report Type: 
  Country: None (occurrence: None)
  Receive Date: 20060411
  Receipt Date: 20051007
  Transmission Date: 20061013
  Serious: Yes (Death, Hospitalization)
  Sender: FDA-Public Use
  Company Number: US-MERCK-0510USA06308

PATIENT
  Age: 55 Year
  Sex: Male
  Weight: 119 kg

DRUGS (4)
  1. VIOXX [Suspect]
     Indication: ARTHRITIS
     Route: 048
     Dates: start: 20020718, end: 20041030
  2. VIOXX [Suspect]
     Indication: PAIN MANAGEMENT
     Route: 048
     Dates: start: 20020718, end: 20041030
  3. ASPIRIN [Concomitant]
     Route: 065
  4. NORVASC [Concomitant]
     Route: 048
     Dates: end: 20041030

REACTIONS (7)
  - CARDIOVASCULAR DISORDER [None]
  - CHEST PAIN [None]
  - DEATH [None]
  - DEPRESSION [None]
  - GENERAL SYMPTOM [None]
  - MYOCARDIAL INFARCTION [None]
  - UPPER RESPIRATORY TRACT INFECTION [None]
